FAERS Safety Report 4439638-4 (Version None)
Quarter: 2004Q3

REPORT INFORMATION
  Report Type: 
  Country: None (occurrence: None)
  Receive Date: 20040830
  Receipt Date: 20040816
  Transmission Date: 20050211
  Serious: No
  Sender: FDA-Public Use
  Company Number: 2004UW17354

PATIENT
  Age: 51 Year
  Sex: Male
  Weight: 83.9154 kg

DRUGS (2)
  1. TOPROL-XL [Suspect]
     Indication: BLOOD PRESSURE
     Dosage: 25 MG DAILY PO
     Route: 048
  2. VALIUM [Concomitant]

REACTIONS (4)
  - COLITIS [None]
  - CONSTIPATION [None]
  - HEPATITIS [None]
  - INTESTINAL OBSTRUCTION [None]
